FAERS Safety Report 4685818-2 (Version None)
Quarter: 2005Q2

REPORT INFORMATION
  Report Type: 
  Country: None (occurrence: None)
  Receive Date: 20050609
  Receipt Date: 20050531
  Transmission Date: 20051028
  Serious: Yes (Hospitalization)
  Sender: FDA-Public Use
  Company Number: JP-JNJFOC-20050300269

PATIENT
  Sex: Female
  Weight: 50 kg

DRUGS (14)
  1. REMICADE [Suspect]
     Route: 042
  2. REMICADE [Suspect]
     Route: 042
  3. REMICADE [Suspect]
     Route: 042
  4. REMICADE [Suspect]
     Route: 042
  5. REMICADE [Suspect]
     Indication: RHEUMATOID ARTHRITIS
     Route: 042
  6. RHEUMATREX [Concomitant]
     Indication: RHEUMATOID ARTHRITIS
     Route: 049
  7. PREDONINE [Concomitant]
     Route: 049
  8. PREDONINE [Concomitant]
     Indication: RHEUMATOID ARTHRITIS
     Route: 049
  9. OMEPRAZOLE [Concomitant]
     Route: 049
  10. ONEALFA [Concomitant]
     Indication: OSTEOPOROSIS
     Route: 049
  11. MAGNESIUM OXIDE [Concomitant]
     Indication: CONSTIPATION
     Route: 049
  12. FASTIC [Concomitant]
     Route: 049
  13. URINORM [Concomitant]
     Route: 049
  14. CRAVIT [Concomitant]
     Indication: CYSTITIS

REACTIONS (10)
  - ANOREXIA [None]
  - BLOOD URIC ACID INCREASED [None]
  - BRONCHOPULMONARY ASPERGILLOSIS [None]
  - CALCULUS URINARY [None]
  - CANDIDIASIS [None]
  - DIABETES MELLITUS INADEQUATE CONTROL [None]
  - ENTEROCOCCAL INFECTION [None]
  - LABORATORY TEST ABNORMAL [None]
  - PNEUMONIA [None]
  - STREPTOCOCCAL INFECTION [None]
